FAERS Safety Report 6638751-0 (Version None)
Quarter: 2010Q1

REPORT INFORMATION
  Report Type: 
  Country: None (occurrence: None)
  Receive Date: 20100316
  Receipt Date: 20100316
  Transmission Date: 20100710
  Serious: Yes (Disabling)
  Sender: FDA-Public Use
  Company Number: None

PATIENT
  Age: 55 Year
  Sex: Female
  Weight: 58.9676 kg

DRUGS (1)
  1. REMICADE [Suspect]
     Indication: CROHN'S DISEASE
     Dosage: DOSE ADJUSTED TO WEIGHT 8 WEEKS IV DRIP
     Route: 041
     Dates: start: 20090212, end: 20091231

REACTIONS (1)
  - SYSTEMIC LUPUS ERYTHEMATOSUS [None]
